FAERS Safety Report 4592450-8 (Version None)
Quarter: 2005Q1

REPORT INFORMATION
  Report Type: 
  Country: None (occurrence: None)
  Receive Date: 20050228
  Receipt Date: 20050210
  Transmission Date: 20050727
  Serious: Yes (Hospitalization)
  Sender: FDA-Public Use
  Company Number: 200510335EU

PATIENT
  Age: 71 Year
  Sex: Female

DRUGS (1)
  1. TAXOTERE [Suspect]
     Indication: BLADDER CANCER
     Route: 042
     Dates: start: 20040318, end: 20040428

REACTIONS (12)
  - ABDOMINAL PAIN UPPER [None]
  - CHOLANGITIS SCLEROSING [None]
  - DUODENITIS [None]
  - FIBROSIS [None]
  - GENERAL PHYSICAL HEALTH DETERIORATION [None]
  - INFLAMMATION [None]
  - JAUNDICE [None]
  - MESENTERIC FIBROSIS [None]
  - METASTASES TO LYMPH NODES [None]
  - NAUSEA [None]
  - OEDEMA [None]
  - PANCREATIC DISORDER [None]
